FAERS Safety Report 7559462-3 (Version None)
Quarter: 2011Q2

REPORT INFORMATION
  Report Type: 
  Country: None (occurrence: None)
  Receive Date: 20110621
  Receipt Date: 20110609
  Transmission Date: 20111010
  Serious: Yes (Other)
  Sender: FDA-Public Use
  Company Number: FR-SANOFI-AVENTIS-2011SA036926

PATIENT
  Age: 82 Year
  Sex: Female

DRUGS (15)
  1. CREON [Concomitant]
     Dosage: DOSE:25000 UNIT(S)
     Route: 048
  2. ENOXAPARIN SODIUM [Suspect]
     Route: 058
     Dates: start: 20110426, end: 20110520
  3. SPASFON [Concomitant]
     Route: 065
  4. ROCEPHIN [Suspect]
     Route: 042
     Dates: start: 20110427, end: 20110511
  5. PANTOPRAZOLE [Concomitant]
     Route: 048
  6. LASIX [Concomitant]
     Dosage: 40 TO 100 MG DAILY
     Route: 048
  7. PREVISCAN [Concomitant]
     Route: 048
  8. PRIMPERAN TAB [Concomitant]
     Route: 048
     Dates: start: 20110429
  9. ACETAMINOPHEN [Concomitant]
     Route: 048
  10. ESKAZOLE [Concomitant]
     Route: 048
  11. MOTILIUM [Concomitant]
     Route: 065
  12. LORAZEPAM [Concomitant]
     Route: 048
  13. BISOPROLOL FUMARATE [Concomitant]
     Route: 048
  14. TRAMADOL HCL [Concomitant]
     Route: 048
     Dates: start: 20110426
  15. DELURSAN [Concomitant]
     Route: 048

REACTIONS (1)
  - AGRANULOCYTOSIS [None]
